FAERS Safety Report 6662549-0 (Version None)
Quarter: 2010Q1

REPORT INFORMATION
  Report Type: 
  Country: None (occurrence: None)
  Receive Date: 20100329
  Receipt Date: 20100118
  Transmission Date: 20100710
  Serious: Yes (Life-Threatening, Hospitalization)
  Sender: FDA-Public Use
  Company Number: RB-00835-2010

PATIENT
  Age: 74 Year
  Sex: Female

DRUGS (9)
  1. BUPRENORPHINE HCL [Suspect]
     Indication: PAIN
     Dosage: INJECTION 0.3 MG
     Route: 030
     Dates: start: 20100107, end: 20100107
  2. FUROSEMIDE [Concomitant]
  3. VALSARTAN [Concomitant]
  4. NIFEDIPINE [Concomitant]
  5. GLIMEPIRIDE [Concomitant]
  6. AZELNIDIPINE(AZELNIDIPINE) [Concomitant]
  7. BERAPROST SODIUM(BERAPROST SODIUM) [Concomitant]
  8. ALPROSTADIL [Concomitant]
  9. HEPARIN SODIUM [Concomitant]

REACTIONS (17)
  - ACUTE PULMONARY OEDEMA [None]
  - BRAIN NATRIURETIC PEPTIDE INCREASED [None]
  - CARDIAC FAILURE [None]
  - DECREASED APPETITE [None]
  - DEPRESSED LEVEL OF CONSCIOUSNESS [None]
  - DIZZINESS [None]
  - FACE OEDEMA [None]
  - GLOMERULAR FILTRATION RATE DECREASED [None]
  - MALAISE [None]
  - OEDEMA PERIPHERAL [None]
  - PNEUMONIA [None]
  - PYREXIA [None]
  - RESPIRATORY DISTRESS [None]
  - TREATMENT FAILURE [None]
  - URINE OUTPUT DECREASED [None]
  - VOMITING [None]
  - WHITE BLOOD CELL COUNT INCREASED [None]
